FAERS Safety Report 8825833 (Version 2)
Quarter: 2014Q1

REPORT INFORMATION
  Report Type: Spontaneous
  Country: US (occurrence: US)
  Receive Date: 20121004
  Receipt Date: 20140311
  Transmission Date: 20141002
  Serious: Yes (Hospitalization)
  Sender: FDA-Public Use
  Company Number: PHHY2012US085133

PATIENT
  Age: 49 Year
  Sex: Male

DRUGS (8)
  1. SERTRALINE [Suspect]
     Dosage: 100 MG, UNK
  2. DOXEPIN [Suspect]
     Dosage: 25 MG, AT BEDTIME
  3. ZOLINZA [Suspect]
     Indication: MYCOSIS FUNGOIDES
     Dosage: 400 MG, UNK
     Route: 048
  4. HYDROCHLOROTHIAZIDE [Concomitant]
     Dosage: 25 MG, UNK
  5. NPH-INSULIN [Concomitant]
  6. NAPROXEN SODIUM [Concomitant]
  7. INSULIN [Concomitant]
  8. OXYCODONE [Concomitant]

REACTIONS (5)
  - Haematemesis [Unknown]
  - Haematochezia [Unknown]
  - Syncope [Unknown]
  - Torsade de pointes [Recovered/Resolved]
  - Hypokalaemia [Recovered/Resolved]
